FAERS Safety Report 8270139-1 (Version None)
Quarter: 2012Q2

REPORT INFORMATION
  Report Type: 
  Country: None (occurrence: None)
  Receive Date: 20120410
  Receipt Date: 20120330
  Transmission Date: 20120825
  Serious: Yes (Other)
  Sender: FDA-Public Use
  Company Number: PHHY2010JP77704

PATIENT
  Sex: Female

DRUGS (13)
  1. LANSOPRAZOLE [Concomitant]
     Indication: PROPHYLAXIS
     Dosage: 15 MG, UNK
     Route: 048
     Dates: start: 20090605
  2. SILECE [Concomitant]
     Dosage: 1 MG, UNK
     Route: 048
     Dates: start: 20120402
  3. ZOLPIDEM [Concomitant]
     Dosage: 5 MG, UNK
     Route: 048
     Dates: start: 20080906, end: 20120402
  4. SUCRALFATE [Concomitant]
     Dosage: 3 G, UNK
     Route: 048
     Dates: start: 20100108
  5. TASIGNA [Suspect]
     Dosage: 400 MG, DAILY
     Route: 048
     Dates: start: 20100109
  6. LANSOPRAZOLE [Concomitant]
     Dosage: 30 MG, UNK
     Route: 048
  7. MUCOSTA [Concomitant]
     Indication: PROPHYLAXIS
     Dosage: 300 MG, UNK
     Route: 048
     Dates: start: 20090605
  8. LOXONIN [Concomitant]
     Dates: start: 20100909
  9. TASIGNA [Suspect]
     Dosage: 800 MG, DAILY
     Route: 048
     Dates: start: 20091205, end: 20091211
  10. MAGNESIUM SULFATE [Concomitant]
     Dosage: 1980 MG, UNK
     Route: 048
     Dates: start: 20120108
  11. TASIGNA [Suspect]
     Indication: CHRONIC MYELOID LEUKAEMIA
     Dosage: 800 MG, DAILY
     Route: 048
     Dates: start: 20091107, end: 20091116
  12. NEUROTROPIN [Concomitant]
     Dosage: 16 IU, UNK
     Route: 048
     Dates: start: 20091107
  13. FAMOTIDINE [Concomitant]
     Dosage: 20 MG, UNK
     Route: 048
     Dates: start: 20100529, end: 20100610

REACTIONS (3)
  - ALANINE AMINOTRANSFERASE INCREASED [None]
  - GAMMA-GLUTAMYLTRANSFERASE INCREASED [None]
  - HEPATIC FUNCTION ABNORMAL [None]
